FAERS Safety Report 7265364-2 (Version None)
Quarter: 2011Q1

REPORT INFORMATION
  Report Type: 
  Country: None (occurrence: None)
  Receive Date: 20110131
  Receipt Date: 20110125
  Transmission Date: 20110831
  Serious: Yes (Hospitalization, Other)
  Sender: FDA-Public Use
  Company Number: DE-ROCHE-689870

PATIENT
  Age: 37 Year
  Sex: Male
  Weight: 75 kg

DRUGS (11)
  1. VALGANCICLOVIR HCL [Suspect]
     Route: 065
     Dates: start: 20070302, end: 20070516
  2. CYCLOSPORINE [Suspect]
     Route: 065
     Dates: end: 20070601
  3. AMLODIPINE [Concomitant]
  4. ESOMEPRAZOLE [Concomitant]
  5. CANDESARTAN/HYDROCHLOROTHIAZIDE [Concomitant]
  6. PREDNISOLONE [Concomitant]
  7. MYCOPHENOLATE MOFETIL [Concomitant]
  8. METOPROLOL [Concomitant]
  9. DIHYDRALAZIN [Concomitant]
     Dosage: TDD: 2X 4 MG
  10. PREDNISOLONE [Concomitant]
  11. DOXORUBICIN [Concomitant]
     Dosage: TDD: 2X 0.7 MG

REACTIONS (2)
  - HAEMOGLOBIN DECREASED [None]
  - BLOOD CREATININE INCREASED [None]
